FAERS Safety Report 19881621 (Version 1)
Quarter: 2021Q3

REPORT INFORMATION
  Report Type: Spontaneous
  Country: DE (occurrence: DE)
  Receive Date: 20210925
  Receipt Date: 20210925
  Transmission Date: 20211014
  Serious: Yes (Hospitalization)
  Sender: FDA-Public Use
  Company Number: NVSC2021DE212005

PATIENT
  Age: 42 Year
  Sex: Female

DRUGS (31)
  1. BEVACIZUMAB. [Concomitant]
     Active Substance: BEVACIZUMAB
     Indication: OVARIAN CANCER
     Dosage: 650 MG, TIW
     Route: 042
     Dates: start: 20201119, end: 20201119
  2. DEXAMETHASONE. [Concomitant]
     Active Substance: DEXAMETHASONE
     Indication: CHEMOTHERAPY SIDE EFFECT PROPHYLAXIS
     Dosage: 20 MG, QD
     Route: 042
     Dates: start: 20201119, end: 20201210
  3. CARBOPLATIN. [Suspect]
     Active Substance: CARBOPLATIN
     Dosage: 414 MG, TIW
     Route: 042
     Dates: start: 20210610, end: 20210610
  4. DURVALUMAB. [Suspect]
     Active Substance: DURVALUMAB
     Dosage: 1120 MG, TIW
     Route: 042
     Dates: start: 20210721, end: 20210721
  5. DURVALUMAB. [Suspect]
     Active Substance: DURVALUMAB
     Dosage: 1120 MG, TIW
     Route: 042
     Dates: start: 20210610, end: 20210610
  6. UNACID [Concomitant]
     Indication: URINARY TRACT INFECTION
     Dosage: 750 MG, QD
     Route: 048
     Dates: start: 202011, end: 20201210
  7. PACLITAXEL. [Suspect]
     Active Substance: PACLITAXEL
     Indication: OVARIAN CANCER
     Dosage: 240 MG, TIW
     Route: 042
     Dates: start: 20201119, end: 20201119
  8. PACLITAXEL. [Suspect]
     Active Substance: PACLITAXEL
     Dosage: 203 MG, TIW
     Route: 042
     Dates: start: 20210520, end: 20210520
  9. CARBOPLATIN. [Suspect]
     Active Substance: CARBOPLATIN
     Dosage: 414 MG, TIW
     Route: 042
     Dates: start: 20210408, end: 20210408
  10. DURVALUMAB. [Suspect]
     Active Substance: DURVALUMAB
     Dosage: 1120 MG, TIW
     Route: 042
     Dates: start: 20201210, end: 20201210
  11. DURVALUMAB. [Suspect]
     Active Substance: DURVALUMAB
     Dosage: 1120 MG, TIW
     Route: 042
     Dates: start: 20210520, end: 20210520
  12. IMODIUM [Concomitant]
     Active Substance: LOPERAMIDE HYDROCHLORIDE
     Indication: DIARRHOEA
     Dosage: 12 DF, QD
     Route: 048
     Dates: start: 202009, end: 20210128
  13. CARBOPLATIN. [Suspect]
     Active Substance: CARBOPLATIN
     Indication: OVARIAN CANCER
     Dosage: 435 MG, TIW
     Route: 042
     Dates: start: 20201119, end: 20201119
  14. CARBOPLATIN. [Suspect]
     Active Substance: CARBOPLATIN
     Dosage: 549 MG, TIW
     Route: 042
     Dates: start: 20201210, end: 20201210
  15. DURVALUMAB. [Suspect]
     Active Substance: DURVALUMAB
     Dosage: 1120 MG, TIW
     Route: 042
     Dates: start: 20210408, end: 20210408
  16. DURVALUMAB. [Suspect]
     Active Substance: DURVALUMAB
     Dosage: 1120 MG, TIW
     Route: 042
     Dates: start: 20210429, end: 20210429
  17. INNOHEP [Concomitant]
     Active Substance: TINZAPARIN SODIUM
     Indication: THROMBOSIS PROPHYLAXIS
     Dosage: UNK, QD
     Route: 058
     Dates: start: 20201210, end: 20201223
  18. PACLITAXEL. [Suspect]
     Active Substance: PACLITAXEL
     Dosage: 202 MG, TIW
     Route: 042
     Dates: start: 20210408, end: 20210408
  19. PACLITAXEL. [Suspect]
     Active Substance: PACLITAXEL
     Dosage: 203 MG, TIW
     Route: 042
     Dates: start: 20210429, end: 20210429
  20. PACLITAXEL. [Suspect]
     Active Substance: PACLITAXEL
     Dosage: 242 MG, TIW
     Route: 042
     Dates: start: 20201210, end: 20201210
  21. CARBOPLATIN. [Suspect]
     Active Substance: CARBOPLATIN
     Dosage: 414 MG, TIW
     Route: 042
     Dates: start: 20210429, end: 20210429
  22. DURVALUMAB. [Suspect]
     Active Substance: DURVALUMAB
     Indication: OVARIAN CANCER
     Dosage: 1120 MG, TIW
     Route: 042
     Dates: start: 20210902, end: 20210902
  23. DURVALUMAB. [Suspect]
     Active Substance: DURVALUMAB
     Dosage: 1120 MG, TIW
     Route: 042
     Dates: start: 20210630, end: 20210630
  24. DURVALUMAB. [Suspect]
     Active Substance: DURVALUMAB
     Dosage: 1120 MG, TIW
     Route: 042
     Dates: start: 20210812, end: 20210812
  25. FAMOTIDINE. [Concomitant]
     Active Substance: FAMOTIDINE
     Indication: CHEMOTHERAPY SIDE EFFECT PROPHYLAXIS
     Dosage: 40 MG, QD
     Route: 048
     Dates: start: 20201119, end: 20201210
  26. NACL [Concomitant]
     Active Substance: SODIUM CHLORIDE
     Indication: PREMEDICATION
     Dosage: 250 ML, QD
     Route: 042
     Dates: start: 20201119, end: 20201210
  27. CLEMASTIN [Concomitant]
     Active Substance: CLEMASTINE
     Indication: CHEMOTHERAPY SIDE EFFECT PROPHYLAXIS
     Dosage: 2 MG, QD
     Route: 042
     Dates: start: 20201119, end: 20201210
  28. PACLITAXEL. [Suspect]
     Active Substance: PACLITAXEL
     Dosage: 207 MG, TIW
     Route: 042
     Dates: start: 20210610, end: 20210610
  29. CARBOPLATIN. [Suspect]
     Active Substance: CARBOPLATIN
     Dosage: 414 MG, TIW
     Route: 042
     Dates: start: 20210520, end: 20210520
  30. VERGENTAN [Concomitant]
     Active Substance: ALIZAPRIDE HYDROCHLORIDE
     Indication: NAUSEA
     Dosage: 50 MG, QD
     Route: 048
     Dates: start: 20201126, end: 20210701
  31. GRANISETRON [Concomitant]
     Active Substance: GRANISETRON
     Indication: CHEMOTHERAPY SIDE EFFECT PROPHYLAXIS
     Dosage: 2 MG, QD
     Route: 048
     Dates: start: 20201119, end: 20201210

REACTIONS (2)
  - Pneumothorax [Recovered/Resolved]
  - Pancytopenia [Recovered/Resolved]

NARRATIVE: CASE EVENT DATE: 20201214
